FAERS Safety Report 5104130-0 (Version None)
Quarter: 2006Q3

REPORT INFORMATION
  Report Type: 
  Country: None (occurrence: None)
  Receive Date: 20060911
  Receipt Date: 20060822
  Transmission Date: 20061208
  Serious: Yes (Life-Threatening)
  Sender: FDA-Public Use
  Company Number: 2006SP000190

PATIENT
  Age: 55 Year
  Sex: Male

DRUGS (3)
  1. TEMODAL [Suspect]
     Indication: GLIOBLASTOMA
     Dates: start: 20040701, end: 20040901
  2. TEMODAL [Suspect]
     Indication: GLIOBLASTOMA
     Dates: start: 20040901, end: 20050101
  3. THERAPEUTIC RADIOPHARMACEUTICALS (CON.) [Concomitant]

REACTIONS (2)
  - CEREBRAL VENTRICLE DILATATION [None]
  - PROGRESSIVE MULTIFOCAL LEUKOENCEPHALOPATHY [None]
